FAERS Safety Report 7786100-7 (Version None)
Quarter: 2011Q3

REPORT INFORMATION
  Report Type: 
  Country: None (occurrence: None)
  Receive Date: 20110929
  Receipt Date: 20110922
  Transmission Date: 20111222
  Serious: Yes (Hospitalization)
  Sender: FDA-Public Use
  Company Number: GB-ROCHE-804366

PATIENT
  Sex: Female

DRUGS (1)
  1. BONIVA [Suspect]
     Indication: BREAST CANCER METASTATIC

REACTIONS (1)
  - NEUTROPENIC SEPSIS [None]
